FAERS Safety Report 11611690 (Version 1)
Quarter: 2015Q4

REPORT INFORMATION
  Report Type: Report from Study
  Country: US (occurrence: US)
  Receive Date: 20151008
  Receipt Date: 20151008
  Transmission Date: 20160304
  Serious: Yes (Other)
  Sender: FDA-Public Use
  Company Number: US-AMGEN-USASP2015103179

PATIENT
  Age: 58 Year
  Sex: Male

DRUGS (1)
  1. ENBREL [Suspect]
     Active Substance: ETANERCEPT
     Indication: RHEUMATOID ARTHRITIS
     Dosage: UNK UNK, UNK
     Route: 065

REACTIONS (13)
  - Gastrointestinal disorder [Unknown]
  - Rash pruritic [Unknown]
  - Cardiac disorder [Unknown]
  - Myocardial infarction [Unknown]
  - Renal disorder [Unknown]
  - Lung disorder [Unknown]
  - Thrombosis [Unknown]
  - Infection [Unknown]
  - Seasonal allergy [Unknown]
  - Rheumatoid arthritis [Unknown]
  - Rash papular [Unknown]
  - Arthropod bite [Unknown]
  - Vascular graft [Unknown]

NARRATIVE: CASE EVENT DATE: 2015
